FAERS Safety Report 10058738 (Version 1)
Quarter: 2014Q2

REPORT INFORMATION
  Report Type: Spontaneous
  Country: US (occurrence: US)
  Receive Date: 20140404
  Receipt Date: 20140404
  Transmission Date: 20141212
  Serious: No
  Sender: FDA-Public Use
  Company Number: US-B.I. PHARMACEUTICALS,INC./RIDGEFIELD-2014-BI-13147BP

PATIENT
  Age: 56 Year
  Sex: Male
  Weight: 74.84 kg

DRUGS (3)
  1. COMBIVENT [Suspect]
     Indication: CHRONIC OBSTRUCTIVE PULMONARY DISEASE
     Dosage: DOSE PER APPLICATION: 20 MCG / 100 MCG
     Route: 055
     Dates: start: 201401
  2. ALBUTEROL [Concomitant]
     Dosage: FORMULATION:INHALATION SPRAY
     Route: 055
  3. ALBUTEROL NEBULIZER [Concomitant]
     Route: 055

REACTIONS (2)
  - Dyspnoea [Recovered/Resolved]
  - Overdose [Not Recovered/Not Resolved]
